FAERS Safety Report 9907075 (Version 3)
Quarter: 2014Q2

REPORT INFORMATION
  Report Type: Spontaneous
  Country: US (occurrence: US)
  Receive Date: 20140218
  Receipt Date: 20140521
  Transmission Date: 20141212
  Serious: Yes (Hospitalization)
  Sender: FDA-Public Use
  Company Number: US-B.I. PHARMACEUTICALS,INC./RIDGEFIELD-2014-BI-00463BP

PATIENT
  Age: 30 Year
  Sex: Female
  Weight: 67.13 kg

DRUGS (1)
  1. PRADAXA [Suspect]
     Indication: ANTICOAGULANT THERAPY
     Route: 065
     Dates: start: 201109, end: 201205

REACTIONS (2)
  - Renal haemorrhage [Unknown]
  - Gastrointestinal haemorrhage [Unknown]
